FAERS Safety Report 16233832 (Version 1)
Quarter: 2019Q2

REPORT INFORMATION
  Report Type: Spontaneous
  Country: US (occurrence: US)
  Receive Date: 20190319
  Receipt Date: 20190319
  Transmission Date: 20190711
  Serious: Yes (Hospitalization, Other)
  Sender: FDA-Public Use
  Company Number: None

PATIENT
  Age: 80 Year
  Sex: Male
  Weight: 88.45 kg

DRUGS (13)
  1. AMIODARONE [Concomitant]
     Active Substance: AMIODARONE
  2. METROPOLOL SUCCINATE [Concomitant]
  3. METFORMIN [Concomitant]
     Active Substance: METFORMIN HYDROCHLORIDE
  4. ASPIRIN. [Concomitant]
     Active Substance: ASPIRIN
  5. VITAMIN E [Suspect]
     Active Substance: .ALPHA.-TOCOPHEROL
  6. LOSARTAN TABS 100MG GENERIC FOR: COZARR TABS [Suspect]
     Active Substance: LOSARTAN
     Indication: CARDIAC FAILURE
     Dosage: ?          QUANTITY:1 DF DOSAGE FORM;?
     Route: 048
     Dates: end: 20190312
  7. MULTIPLE VITAMIN [Concomitant]
     Active Substance: VITAMINS
  8. LOSARTAN TABS 100MG GENERIC FOR: COZARR TABS [Suspect]
     Active Substance: LOSARTAN
     Indication: HYPERTENSION
     Dosage: ?          QUANTITY:1 DF DOSAGE FORM;?
     Route: 048
     Dates: end: 20190312
  9. ELIQUIS [Concomitant]
     Active Substance: APIXABAN
  10. FUROSIMIDE [Concomitant]
     Active Substance: FUROSEMIDE
  11. INSULIN GLARGINE [Concomitant]
     Active Substance: INSULIN GLARGINE
  12. NIACIN. [Concomitant]
     Active Substance: NIACIN
  13. CALCIUM + D [Concomitant]
     Active Substance: CALCIUM\VITAMIN D

REACTIONS (6)
  - Haematocrit decreased [None]
  - Recalled product administered [None]
  - Product contamination [None]
  - Haemoglobin decreased [None]
  - Blood urine present [None]
  - Product substitution issue [None]

NARRATIVE: CASE EVENT DATE: 20190312
